FAERS Safety Report 8720659 (Version 3)
Quarter: 2012Q4

REPORT INFORMATION
  Report Type: Report from Study
  Country: US (occurrence: US)
  Receive Date: 20120813
  Receipt Date: 20120925
  Transmission Date: 20130627
  Serious: Yes (Hospitalization)
  Sender: FDA-Public Use
  Company Number: US-ROCHE-1099464

PATIENT
  Age: 50 Year
  Sex: Female

DRUGS (10)
  1. PEGASYS [Suspect]
     Indication: HEPATITIS C
     Route: 058
     Dates: start: 20120802, end: 20120804
  2. COPEGUS [Suspect]
     Indication: HEPATITIS C
     Route: 048
     Dates: start: 20120802, end: 20120806
  3. UNSPECIFIED INGREDIENT [Suspect]
     Indication: HEPATITIS C
     Route: 048
     Dates: start: 20120717, end: 20120801
  4. DACLATASVIR [Suspect]
     Indication: HEPATITIS C
     Route: 048
     Dates: start: 20120717, end: 20120801
  5. TELAPREVIR [Suspect]
     Indication: HEPATITIS C
     Route: 048
     Dates: start: 20120802, end: 20120806
  6. LANTUS [Concomitant]
     Indication: DIABETES MELLITUS
     Route: 048
     Dates: start: 2010
  7. IBUPROFEN [Concomitant]
     Route: 048
     Dates: start: 1992
  8. XANAX [Concomitant]
     Indication: ANXIETY
     Route: 048
     Dates: start: 2004
  9. ENABLEX [Concomitant]
     Route: 048
     Dates: start: 201204
  10. BETABLOCKERS [Concomitant]

REACTIONS (1)
  - Sinus bradycardia [Unknown]
